FAERS Safety Report 20221662 (Version 1)
Quarter: 2021Q4

REPORT INFORMATION
  Report Type: Spontaneous
  Country: US (occurrence: None)
  Receive Date: 20211223
  Receipt Date: 20211223
  Transmission Date: 20220304
  Serious: No
  Sender: FDA-Public Use
  Company Number: 2021A857291

PATIENT
  Age: 48 Year
  Sex: Female
  Weight: 97.1 kg

DRUGS (1)
  1. BUDESONIDE\FORMOTEROL\GLYCOPYRRONIUM [Suspect]
     Active Substance: BUDESONIDE\FORMOTEROL\GLYCOPYRRONIUM
     Indication: Chronic obstructive pulmonary disease
     Route: 055
     Dates: start: 2021

REACTIONS (9)
  - Dyspnoea [Unknown]
  - Vision blurred [Unknown]
  - Wrong technique in device usage process [Unknown]
  - Product label issue [Unknown]
  - Therapeutic response shortened [Unknown]
  - Product use complaint [Unknown]
  - Device use issue [Unknown]
  - Wrong technique in product usage process [Unknown]
  - Product delivery mechanism issue [Unknown]

NARRATIVE: CASE EVENT DATE: 20210101
